FAERS Safety Report 7101494-3 (Version None)
Quarter: 2010Q4

REPORT INFORMATION
  Report Type: 
  Country: None (occurrence: None)
  Receive Date: 20101108
  Receipt Date: 20101026
  Transmission Date: 20110411
  Serious: Yes (Hospitalization)
  Sender: FDA-Public Use
  Company Number: FR-GDP-10408942

PATIENT
  Sex: Female

DRUGS (3)
  1. ROZEX (METRONIDAZOLE) [Suspect]
     Indication: ROSACEA
     Dosage: TOPICAL
     Route: 061
     Dates: start: 20100913, end: 20100929
  2. TOLEXINE (DOXYCYCLINE HYDROCHLORIDE) 100 MG [Suspect]
     Indication: ROSACEA
     Dosage: 100 MG QD ORAL
     Route: 048
     Dates: start: 20100913, end: 20100926
  3. TRIPHASIL-21 [Concomitant]

REACTIONS (8)
  - CONJUNCTIVITIS [None]
  - DRUG RASH WITH EOSINOPHILIA AND SYSTEMIC SYMPTOMS [None]
  - HEADACHE [None]
  - PYREXIA [None]
  - RASH GENERALISED [None]
  - RASH MACULAR [None]
  - TOXIC SKIN ERUPTION [None]
  - UVEITIS [None]
